FAERS Safety Report 19495204 (Version 1)
Quarter: 2021Q3

REPORT INFORMATION
  Report Type: Spontaneous
  Country: US (occurrence: US)
  Receive Date: 20210705
  Receipt Date: 20210705
  Transmission Date: 20211014
  Serious: Yes (Hospitalization)
  Sender: FDA-Public Use
  Company Number: US-JNJFOC-20210660728

PATIENT
  Age: 45 Year
  Sex: Male

DRUGS (2)
  1. TREMFYA [Suspect]
     Active Substance: GUSELKUMAB
     Indication: PSORIASIS
     Dosage: WEEK4 DOSE ON 05?APR?2021
     Route: 058
     Dates: start: 20210308
  2. SARS?COV?2 VACCINE [Concomitant]
     Indication: COVID-19
     Dates: start: 20210305

REACTIONS (1)
  - Hyperthyroidism [Unknown]
